FAERS Safety Report 17444461 (Version 1)
Quarter: 2020Q1

REPORT INFORMATION
  Report Type: Spontaneous
  Country: US (occurrence: US)
  Receive Date: 20200207
  Receipt Date: 20200207
  Transmission Date: 20200409
  Serious: No
  Sender: FDA-Public Use
  Company Number: None

PATIENT
  Age: 73 Year
  Sex: Female
  Weight: 89 kg

DRUGS (7)
  1. SPIRONLACTONE [Concomitant]
  2. ELIQUIS [Concomitant]
     Active Substance: APIXABAN
  3. OMEPRAZOLE. [Concomitant]
     Active Substance: OMEPRAZOLE
  4. METOPROLOL. [Concomitant]
     Active Substance: METOPROLOL
  5. IBRANCE [Suspect]
     Active Substance: PALBOCICLIB
     Indication: BREAST CANCER
     Dosage: ?          OTHER FREQUENCY:QD D1-21 THEN 7 OF;?
     Route: 048
     Dates: start: 20190205, end: 20200206
  6. ANASTRAZOLE [Concomitant]
     Active Substance: ANASTROZOLE
  7. FUROSEMIDE. [Concomitant]
     Active Substance: FUROSEMIDE

REACTIONS (2)
  - Metastases to liver [None]
  - Disease progression [None]

NARRATIVE: CASE EVENT DATE: 20200206
